FAERS Safety Report 22526478 (Version 1)
Quarter: 2023Q2

REPORT INFORMATION
  Report Type: Spontaneous
  Country: NL (occurrence: NL)
  Receive Date: 20230606
  Receipt Date: 20230606
  Transmission Date: 20230721
  Serious: Yes (Death, Other)
  Sender: FDA-Public Use
  Company Number: NL-AMGEN-NLDSP2023094537

PATIENT

DRUGS (8)
  1. BEVACIZUMAB [Suspect]
     Active Substance: BEVACIZUMAB
     Indication: Non-small cell lung cancer
     Dosage: 15 MILLIGRAM/KG, Q3WK
     Route: 065
  2. BEVACIZUMAB [Suspect]
     Active Substance: BEVACIZUMAB
     Dosage: 10 MILLIGRAM/KG, Q4WK (ON DAY 1 AND 15)
     Route: 065
  3. PEMETREXED [Concomitant]
     Active Substance: PEMETREXED
     Dosage: 500 MILLIGRAM/M^2, Q3WK
     Route: 065
  4. PACLITAXEL [Concomitant]
     Active Substance: PACLITAXEL
     Dosage: 200 MILLIGRAM/M^2
     Route: 065
  5. PACLITAXEL [Concomitant]
     Active Substance: PACLITAXEL
     Dosage: 90 MILLIGRAM/M^2 (ON DAY 1, 8 AND 15)
     Route: 065
  6. ATEZOLIZUMAB [Concomitant]
     Active Substance: ATEZOLIZUMAB
     Dosage: 1200 MILLIGRAM, Q3WK
  7. CISPLATIN [Concomitant]
     Active Substance: CISPLATIN
     Dosage: 75 MILLIGRAM/M^2
     Route: 065
  8. CARBOPLATIN [Concomitant]
     Active Substance: CARBOPLATIN
     Dosage: UNK
     Route: 065

REACTIONS (4)
  - Death [Fatal]
  - Non-small cell lung cancer metastatic [Unknown]
  - Toxicity to various agents [Unknown]
  - Therapy partial responder [Unknown]
